FAERS Safety Report 6966774-0 (Version None)
Quarter: 2010Q3

REPORT INFORMATION
  Report Type: 
  Country: None (occurrence: None)
  Receive Date: 20100906
  Receipt Date: 20100901
  Transmission Date: 20110219
  Serious: Yes (Hospitalization)
  Sender: FDA-Public Use
  Company Number: US-BRISTOL-MYERS SQUIBB COMPANY-15268022

PATIENT
  Age: 57 Year
  Sex: Female
  Weight: 64 kg

DRUGS (4)
  1. ERBITUX [Suspect]
     Indication: NON-SMALL CELL LUNG CANCER
     Route: 042
     Dates: start: 20100419, end: 20100706
  2. TAXOL [Suspect]
     Indication: NON-SMALL CELL LUNG CANCER
     Route: 042
     Dates: start: 20100419, end: 20100706
  3. TAXOL [Suspect]
     Route: 042
     Dates: start: 20100419, end: 20100706
  4. CARBOPLATIN [Suspect]
     Indication: NON-SMALL CELL LUNG CANCER
     Route: 042
     Dates: start: 20100419, end: 20100706

REACTIONS (1)
  - CONFUSIONAL STATE [None]
